FAERS Safety Report 11886530 (Version 3)
Quarter: 2016Q1

REPORT INFORMATION
  Report Type: Spontaneous
  Country: US (occurrence: US)
  Receive Date: 20160104
  Receipt Date: 20160126
  Transmission Date: 20160526
  Serious: Yes (Other)
  Sender: FDA-Public Use
  Company Number: US-BAYER-2015-495747

PATIENT
  Age: 26 Year
  Sex: Female
  Weight: 71 kg

DRUGS (3)
  1. SYNTHROID [Concomitant]
     Active Substance: LEVOTHYROXINE SODIUM
  2. AMOXICILLIN. [Concomitant]
     Active Substance: AMOXICILLIN
  3. YASMIN [Suspect]
     Active Substance: DROSPIRENONE\ETHINYL ESTRADIOL
     Indication: CONTRACEPTION
     Dosage: UNK
     Route: 048
     Dates: start: 201507

REACTIONS (19)
  - Diarrhoea [Recovered/Resolved]
  - Blood pressure decreased [Recovered/Resolved]
  - Flatulence [Recovered/Resolved]
  - Emotional distress [None]
  - Drug ineffective [None]
  - Nausea [None]
  - Menstruation delayed [None]
  - Crying [None]
  - Ovarian cyst [None]
  - Pregnancy on oral contraceptive [None]
  - Abdominal pain lower [None]
  - Vomiting [None]
  - Feeling abnormal [None]
  - Stress [None]
  - Gastrointestinal disorder [None]
  - Abdominal pain lower [None]
  - Decreased appetite [Recovered/Resolved]
  - Chest pain [None]
  - Gastric disorder [None]

NARRATIVE: CASE EVENT DATE: 2015
